FAERS Safety Report 5503114-8 (Version None)
Quarter: 2007Q4

REPORT INFORMATION
  Report Type: 
  Country: None (occurrence: None)
  Receive Date: 20071031
  Receipt Date: 20071022
  Transmission Date: 20080405
  Serious: Yes (Disabling, Other)
  Sender: FDA-Public Use
  Company Number: GB-ABBOTT-07P-167-0371658-00

PATIENT
  Sex: Male
  Weight: 79 kg

DRUGS (11)
  1. HUMIRA [Suspect]
     Indication: RHEUMATOID ARTHRITIS
     Route: 058
     Dates: start: 20070531, end: 20070531
  2. METHOTREXATE [Concomitant]
     Indication: RHEUMATOID ARTHRITIS
     Route: 058
  3. SODIUM PICOSULFATE [Concomitant]
     Indication: DRUG USE FOR UNKNOWN INDICATION
  4. FENTANYL [Concomitant]
     Indication: RHEUMATOID ARTHRITIS
     Dosage: 12 MCG/HOUR
     Route: 062
  5. FENTANYL [Concomitant]
     Indication: PAIN
     Dosage: 25 MCG
     Route: 062
     Dates: start: 20070612
  6. ATORVASTATIN CALCIUM [Concomitant]
     Indication: BLOOD CHOLESTEROL INCREASED
  7. PREGABALIN [Concomitant]
     Indication: DRUG USE FOR UNKNOWN INDICATION
     Dates: start: 20070130
  8. FOLIC ACID [Concomitant]
     Indication: DRUG USE FOR UNKNOWN INDICATION
  9. LACTULOSE [Concomitant]
     Indication: DRUG USE FOR UNKNOWN INDICATION
  10. ATORVASTATIN CALCIUM [Concomitant]
     Indication: BLOOD CHOLESTEROL INCREASED
  11. PREGABALIN [Concomitant]
     Dates: start: 20070130

REACTIONS (10)
  - ADVERSE DRUG REACTION [None]
  - ANAPHYLACTIC REACTION [None]
  - CONTUSION [None]
  - EYE SWELLING [None]
  - NASOPHARYNGITIS [None]
  - ORAL HERPES [None]
  - PETECHIAE [None]
  - PLATELET COUNT DECREASED [None]
  - PRURITUS [None]
  - SWELLING FACE [None]
